FAERS Safety Report 6086296-1 (Version None)
Quarter: 2009Q1

REPORT INFORMATION
  Report Type: 
  Country: None (occurrence: None)
  Receive Date: 20090220
  Receipt Date: 20090213
  Transmission Date: 20090719
  Serious: No
  Sender: FDA-Public Use
  Company Number: US-B.I. PHARMACEUTICALS,INC./RIDGEFIELD-2009-BP-01975BP

PATIENT
  Sex: Female
  Weight: 96 kg

DRUGS (5)
  1. ZANTAC 150 [Suspect]
     Indication: DYSPEPSIA
     Dosage: 300MG
     Route: 048
     Dates: start: 20081130
  2. ZANTAC 150 [Suspect]
     Indication: GASTROOESOPHAGEAL REFLUX DISEASE
  3. IRON PILLS [Concomitant]
     Indication: ANAEMIA
     Route: 048
  4. REGLAN [Concomitant]
     Indication: VOMITING IN PREGNANCY
  5. PHENERGAN [Concomitant]
     Indication: VOMITING IN PREGNANCY

REACTIONS (2)
  - DRUG EFFECT DECREASED [None]
  - PROTEIN URINE PRESENT [None]
